FAERS Safety Report 25621810 (Version 2)
Quarter: 2025Q3

REPORT INFORMATION
  Report Type: Report from Study
  Country: CA (occurrence: None)
  Receive Date: 20250730
  Receipt Date: 20250917
  Transmission Date: 20251020
  Serious: Yes (Other)
  Sender: ORION
  Company Number: CA-PFIZER INC-202500151007

PATIENT
  Age: 55 Year
  Sex: Female

DRUGS (3)
  1. METHOTREXATE [Suspect]
     Active Substance: METHOTREXATE
     Indication: Product used for unknown indication
  2. RITUXIMAB [Suspect]
     Active Substance: RITUXIMAB
     Indication: Rheumatoid arthritis
  3. RITUXIMAB [Suspect]
     Active Substance: RITUXIMAB

REACTIONS (5)
  - Malignant neoplasm progression [Unknown]
  - Inflammation [Unknown]
  - Rheumatoid arthritis [Unknown]
  - Inappropriate schedule of product administration [Unknown]
  - Wrong technique in product usage process [Unknown]
